FAERS Safety Report 9832195 (Version 1)
Quarter: 2014Q1

REPORT INFORMATION
  Report Type: Spontaneous
  Country: US (occurrence: US)
  Receive Date: 20140121
  Receipt Date: 20140121
  Transmission Date: 20141002
  Serious: No
  Sender: FDA-Public Use
  Company Number: US-PFIZER INC-2014014919

PATIENT
  Sex: Female

DRUGS (4)
  1. ADVIL [Suspect]
     Dosage: UNK
     Route: 048
  2. ADVIL [Suspect]
     Dosage: TWO TABLETS OF IBUPROFEN 200MG (400 MG), UNK
     Route: 048
  3. MUCINEX [Suspect]
     Indication: COUGH
     Dosage: UNK
  4. MUCINEX [Suspect]
     Indication: NASAL CONGESTION

REACTIONS (1)
  - Somnolence [Unknown]
